FAERS Safety Report 4550500-9 (Version None)
Quarter: 2005Q1

REPORT INFORMATION
  Report Type: 
  Country: None (occurrence: None)
  Receive Date: 20050110
  Receipt Date: 20041019
  Transmission Date: 20050727
  Serious: Yes (Hospitalization)
  Sender: FDA-Public Use
  Company Number: 2004SP000249

PATIENT
  Age: 11 Year
  Sex: Male
  Weight: 39.4629 kg

DRUGS (1)
  1. XOPENEX [Suspect]
     Indication: DYSPNOEA
     Dosage: 0.63 MG/3ML; INHALATION
     Route: 055
     Dates: start: 20040930, end: 20040930

REACTIONS (3)
  - BRONCHOSPASM PARADOXICAL [None]
  - EOSINOPHILIA [None]
  - STATUS ASTHMATICUS [None]
